FAERS Safety Report 8786993 (Version 4)
Quarter: 2013Q1

REPORT INFORMATION
  Report Type: Spontaneous
  Country: GB (occurrence: GB)
  Receive Date: 20120914
  Receipt Date: 20130117
  Transmission Date: 20140127
  Serious: Yes (Death, Other)
  Sender: FDA-Public Use
  Company Number: PHFR2012GB004926

PATIENT
  Age: 33 Year
  Sex: Female

DRUGS (12)
  1. CLOZARIL [Suspect]
     Indication: SCHIZOPHRENIA
     Dosage: UNK UKN, UNK
     Route: 048
     Dates: start: 19981005
  2. CLOZARIL [Suspect]
     Dosage: 300 MG, (100MG MANE AND 200 MG NOCTE)
     Route: 048
     Dates: start: 20091014, end: 20101215
  3. CLOZARIL [Suspect]
     Dosage: 400 MG, UNK
     Route: 048
     Dates: start: 20101215, end: 20110505
  4. CLOZARIL [Suspect]
     Dosage: 450 MG, UNK
     Route: 048
     Dates: start: 20110505, end: 20110516
  5. CLOZARIL [Suspect]
     Dosage: 300 MG, UNK
     Route: 048
     Dates: start: 20110516, end: 20111103
  6. CLOZARIL [Suspect]
     Dosage: 400 MG, UNK
     Route: 048
     Dates: start: 20111103
  7. LAMOTRIGINE [Concomitant]
     Dosage: 150 MG, UNK
     Route: 048
  8. FLUOXETINE [Concomitant]
     Dosage: 40 MG, UNK
     Route: 048
  9. FOLIC ACID [Concomitant]
     Dosage: 10 MG, UNK
     Route: 048
  10. PROCYCLIDINE [Concomitant]
     Dosage: 15 MG, UNK
     Route: 048
  11. HALOPERIDOL [Concomitant]
     Dosage: 5 MG, UNK
     Route: 048
  12. HYOSCINE [Concomitant]
     Dosage: 300 UG, UNK
     Route: 048

REACTIONS (5)
  - Death [Fatal]
  - Fall [Recovered/Resolved]
  - Malaise [Not Recovered/Not Resolved]
  - Neutrophil count increased [Unknown]
  - White blood cell count increased [Unknown]
